FAERS Safety Report 5441856-3 (Version None)
Quarter: 2007Q3

REPORT INFORMATION
  Report Type: 
  Country: None (occurrence: None)
  Receive Date: 20070830
  Receipt Date: 20070830
  Transmission Date: 20080115
  Serious: Yes (Other)
  Sender: FDA-Public Use
  Company Number: None

PATIENT
  Age: 55 Year
  Sex: Male
  Weight: 79.3795 kg

DRUGS (3)
  1. LIPITOR [Suspect]
     Indication: BLOOD CHOLESTEROL INCREASED
     Dosage: 1 PILL DAILY PO
     Route: 048
     Dates: start: 20070308, end: 20070808
  2. LIPITOR [Suspect]
     Indication: CORONARY ARTERY OCCLUSION
     Dosage: 1 PILL DAILY PO
     Route: 048
     Dates: start: 20070308, end: 20070808
  3. LIPITOR [Suspect]
     Indication: LOW DENSITY LIPOPROTEIN INCREASED
     Dosage: 1 PILL DAILY PO
     Route: 048
     Dates: start: 20070308, end: 20070808

REACTIONS (5)
  - ANORGASMIA [None]
  - ASTHENIA [None]
  - ERECTILE DYSFUNCTION [None]
  - MUSCULOSKELETAL STIFFNESS [None]
  - MYALGIA [None]
